FAERS Safety Report 25714460 (Version 3)
Quarter: 2025Q4

REPORT INFORMATION
  Report Type: Report from Study
  Country: US (occurrence: US)
  Receive Date: 20250822
  Receipt Date: 20251003
  Transmission Date: 20260117
  Serious: No
  Sender: SUNOVION
  Company Number: US-SMPA-2025SPA010620

PATIENT
  Age: 72 Year
  Sex: Male

DRUGS (21)
  1. ORGOVYX [Suspect]
     Active Substance: RELUGOLIX
     Indication: Prostate cancer
     Dosage: 360 MG
     Route: 048
     Dates: start: 20250714, end: 20250714
  2. ORGOVYX [Suspect]
     Active Substance: RELUGOLIX
     Dosage: 120 MG
     Route: 048
  3. ALBUTEROL SULFATE [Concomitant]
     Active Substance: ALBUTEROL SULFATE
  4. ANORO ELLIPTA [Concomitant]
     Active Substance: UMECLIDINIUM BROMIDE\VILANTEROL TRIFENATATE
  5. ARICEPT [Concomitant]
     Active Substance: DONEPEZIL HYDROCHLORIDE
  6. BUSPIRONE HCL [Concomitant]
     Active Substance: BUSPIRONE HYDROCHLORIDE
  7. CYCLOBENZAPRINE [Concomitant]
     Active Substance: CYCLOBENZAPRINE
  8. CYANOCOBALAMIN [Concomitant]
     Active Substance: CYANOCOBALAMIN
  9. GABAPENTIN [Concomitant]
     Active Substance: GABAPENTIN
  10. IPRATROPIUM BROMIDE [Concomitant]
     Active Substance: IPRATROPIUM BROMIDE
  11. LINZESS [Concomitant]
     Active Substance: LINACLOTIDE
  12. LOSARTAN [Concomitant]
     Active Substance: LOSARTAN
  13. METFORMIN [Concomitant]
     Active Substance: METFORMIN HYDROCHLORIDE
  14. METOPROLOL TARTRATE [Concomitant]
     Active Substance: METOPROLOL TARTRATE
  15. MYRBETRIQ [Concomitant]
     Active Substance: MIRABEGRON
  16. OZEMPIC [Concomitant]
     Active Substance: SEMAGLUTIDE
  17. PRAVASTATIN [Concomitant]
     Active Substance: PRAVASTATIN
  18. VITAMIN B12 [Concomitant]
     Active Substance: CYANOCOBALAMIN
  19. VITAMIN D3 [Concomitant]
     Active Substance: CHOLECALCIFEROL
  20. XARELTO [Concomitant]
     Active Substance: RIVAROXABAN
  21. XYZAL [Concomitant]
     Active Substance: LEVOCETIRIZINE DIHYDROCHLORIDE

REACTIONS (6)
  - Mental disorder [Unknown]
  - General physical condition abnormal [Unknown]
  - Quality of life decreased [Unknown]
  - Asthenia [Unknown]
  - Hot flush [Unknown]
  - Myalgia [Unknown]
